FAERS Safety Report 5035815-2 (Version None)
Quarter: 2006Q2

REPORT INFORMATION
  Report Type: 
  Country: None (occurrence: None)
  Receive Date: 20060526
  Receipt Date: 20060425
  Transmission Date: 20061013
  Serious: No
  Sender: FDA-Public Use
  Company Number: FABR-11317

PATIENT
  Age: 53 Year
  Sex: Male

DRUGS (16)
  1. FABRAZYME [Suspect]
     Indication: FABRY'S DISEASE
     Dosage: SEE IMAGE
     Route: 042
     Dates: start: 20031015, end: 20040928
  2. FABRAZYME [Suspect]
     Indication: FABRY'S DISEASE
     Dosage: SEE IMAGE
     Route: 042
     Dates: start: 20041206
  3. FABRAZYME [Suspect]
     Indication: FABRY'S DISEASE
     Dosage: SEE IMAGE
     Route: 042
     Dates: start: 20050501
  4. PREVISCAN [Concomitant]
  5. SOLUPRED [Concomitant]
  6. PLAVIX [Concomitant]
  7. TRIATEC [Concomitant]
  8. TRINIPATCH [Concomitant]
  9. ADANCOR [Concomitant]
  10. B1/B6 [Concomitant]
  11. MOPRAL [Concomitant]
  12. ACTONEL [Concomitant]
  13. PRAVASTATIN [Concomitant]
  14. ATARAX [Concomitant]
  15. ZOPICLONE [Concomitant]
  16. CACIT D3 [Concomitant]

REACTIONS (2)
  - CHILLS [None]
  - PAIN [None]
